FAERS Safety Report 24795491 (Version 1)
Quarter: 2024Q4

REPORT INFORMATION
  Report Type: Other
  Country: ZA (occurrence: ZA)
  Receive Date: 20241231
  Receipt Date: 20241231
  Transmission Date: 20250115
  Serious: Yes (Death, Life-Threatening, Hospitalization, Other)
  Sender: B BRAUN
  Company Number: ZA-B.Braun Medical Inc.-2168138

PATIENT
  Sex: Female

DRUGS (2)
  1. ACETAMINOPHEN [Suspect]
     Active Substance: ACETAMINOPHEN
     Indication: Intentional overdose
  2. FERROUS SULFATE [Suspect]
     Active Substance: FERROUS SULFATE

REACTIONS (13)
  - Acute hepatic failure [Fatal]
  - Drug abuse [Fatal]
  - Intentional overdose [Fatal]
  - Off label use [Fatal]
  - Brain oedema [Fatal]
  - Pulmonary haemorrhage [Fatal]
  - Pulmonary oedema [Fatal]
  - Gastritis [Fatal]
  - Haemoglobin decreased [Fatal]
  - Upper gastrointestinal haemorrhage [Fatal]
  - Leukocytosis [Fatal]
  - Metabolic acidosis [Fatal]
  - Toxicity to various agents [Fatal]
